FAERS Safety Report 17211623 (Version 1)
Quarter: 2019Q4

REPORT INFORMATION
  Report Type: Report from Study
  Country: ES (occurrence: ES)
  Receive Date: 20191229
  Receipt Date: 20191229
  Transmission Date: 20200122
  Serious: Yes (Hospitalization)
  Sender: FDA-Public Use
  Company Number: ES-TEVA-2019-ES-1158292

PATIENT
  Age: 86 Year
  Sex: Female

DRUGS (5)
  1. AMOXICILINA (108A) [Suspect]
     Active Substance: AMOXICILLIN
     Indication: CATARRH
     Dosage: 3 GRAM 1 DAYS
     Route: 048
     Dates: start: 20171222, end: 20171228
  2. OMEPRAZOL (2141A) [Concomitant]
     Active Substance: OMEPRAZOLE
     Indication: ABDOMINAL PAIN UPPER
     Dosage: 40 MG 1 DAYS
     Route: 048
  3. ADIRO 100 MG COMPRIMIDOS GASTRORRESISTENTES EFG, 30 COMPRIMIDOS (POLIP [Concomitant]
     Active Substance: ASPIRIN
     Indication: ACUTE MYOCARDIAL INFARCTION
     Dosage: 100 MG 1 DAYS
     Route: 048
     Dates: start: 20080111, end: 20180112
  4. ENALAPRIL MALEATO (2142MA) [Concomitant]
     Active Substance: ENALAPRIL MALEATE
     Indication: HYPERTENSION
     Dosage: 20 MG 1 DAYS
     Route: 048
     Dates: start: 20080319
  5. SIMVASTATINA (1023A) [Concomitant]
     Active Substance: SIMVASTATIN
     Indication: DYSLIPIDAEMIA
     Dosage: 20 MG 1 DAYS
     Route: 048
     Dates: start: 20061201

REACTIONS (2)
  - Hyponatraemia [Recovered/Resolved]
  - Diarrhoea [Recovered/Resolved]

NARRATIVE: CASE EVENT DATE: 20171228
